FAERS Safety Report 5897583-1 (Version None)
Quarter: 2008Q3

REPORT INFORMATION
  Report Type: 
  Country: None (occurrence: None)
  Receive Date: 20080925
  Receipt Date: 20080915
  Transmission Date: 20090109
  Serious: Yes (Hospitalization)
  Sender: FDA-Public Use
  Company Number: US-NOVOPROD-279479

PATIENT
  Age: 79 Year
  Sex: Male

DRUGS (2)
  1. NOVOLIN N [Suspect]
     Indication: DIABETES MELLITUS
     Dosage: 30 IU, QD
     Route: 058
     Dates: end: 20080911
  2. NOVOLIN R [Suspect]
     Indication: DIABETES MELLITUS
     Dosage: 5 IU, TID (+SLIDING SCALE)
     Route: 058

REACTIONS (1)
  - FALL [None]
